FAERS Safety Report 5154980-X (Version None)
Quarter: 2006Q4

REPORT INFORMATION
  Report Type: 
  Country: None (occurrence: None)
  Receive Date: 20061121
  Receipt Date: 20061108
  Transmission Date: 20070319
  Serious: No
  Sender: FDA-Public Use
  Company Number: BR-ELI_LILLY_AND_COMPANY-BR200611001547

PATIENT
  Age: 74 Year
  Sex: Male
  Weight: 61 kg

DRUGS (1)
  1. CIALIS [Suspect]
     Indication: ERECTILE DYSFUNCTION
     Dosage: 20 MG, DAILY (1/D)
     Route: 048
     Dates: start: 20051101

REACTIONS (2)
  - DRUG INEFFECTIVE [None]
  - VISION BLURRED [None]
